FAERS Safety Report 4565144-2 (Version None)
Quarter: 2005Q1

REPORT INFORMATION
  Report Type: 
  Country: None (occurrence: None)
  Receive Date: 20050126
  Receipt Date: 20050111
  Transmission Date: 20050727
  Serious: No
  Sender: FDA-Public Use
  Company Number: A01200406552

PATIENT
  Age: 81 Year
  Sex: Female

DRUGS (3)
  1. CLOPIDOGREL BISULFATE [Suspect]
     Indication: TRANSIENT ISCHAEMIC ATTACK
     Dosage: 75 MG QD
     Route: 048
     Dates: start: 20041111
  2. DIGOXIN [Concomitant]
  3. ADALAT [Concomitant]

REACTIONS (4)
  - CONDITION AGGRAVATED [None]
  - MACULAR DEGENERATION [None]
  - RETINAL HAEMORRHAGE [None]
  - VISUAL ACUITY REDUCED [None]
